FAERS Safety Report 19911360 (Version 1)
Quarter: 2021Q4

REPORT INFORMATION
  Report Type: Spontaneous
  Country: US (occurrence: US)
  Receive Date: 20211001
  Receipt Date: 20211001
  Transmission Date: 20220303
  Serious: Yes (unspecified)
  Sender: FDA-Public Use
  Company Number: None

PATIENT
  Age: 46 Year
  Sex: Male
  Weight: 97.2 kg

DRUGS (1)
  1. IRON SUCROSE [Suspect]
     Active Substance: IRON SUCROSE
     Indication: Blood iron decreased
     Dosage: ?          OTHER FREQUENCY:ONCE;
     Route: 041
     Dates: start: 20211001, end: 20211001

REACTIONS (6)
  - Hypersensitivity [None]
  - Chills [None]
  - Muscle spasms [None]
  - Diplopia [None]
  - Somnolence [None]
  - Formication [None]

NARRATIVE: CASE EVENT DATE: 20211001
